FAERS Safety Report 14467281 (Version 2)
Quarter: 2019Q1

REPORT INFORMATION
  Report Type: Spontaneous
  Country: US (occurrence: US)
  Receive Date: 20180131
  Receipt Date: 20190308
  Transmission Date: 20190417
  Serious: Yes (Disabling, Other)
  Sender: FDA-Public Use
  Company Number: US-009507513-1801USA010886

PATIENT
  Sex: Female
  Weight: 58 kg

DRUGS (8)
  1. LOVASTATIN. [Suspect]
     Active Substance: LOVASTATIN
     Dosage: UNK
     Dates: start: 2008
  2. PRAVASTATIN. [Suspect]
     Active Substance: PRAVASTATIN
  3. ZOCOR [Suspect]
     Active Substance: SIMVASTATIN
     Dosage: UNK
     Route: 048
     Dates: start: 2008
  4. PREDNISONE. [Suspect]
     Active Substance: PREDNISONE
     Indication: ALOPECIA
  5. PREDNISONE. [Suspect]
     Active Substance: PREDNISONE
     Indication: ACNE
  6. DOXYCYCLINE. [Concomitant]
     Active Substance: DOXYCYCLINE
  7. PREDNISONE. [Suspect]
     Active Substance: PREDNISONE
     Indication: ORGANISING PNEUMONIA
  8. ATORVASTATIN [Suspect]
     Active Substance: ATORVASTATIN
     Dosage: UNK
     Dates: start: 20170801

REACTIONS (13)
  - Headache [Recovering/Resolving]
  - Arthritis [Not Recovered/Not Resolved]
  - Osteoporosis [Not Recovered/Not Resolved]
  - Insomnia [Unknown]
  - Weight increased [Recovered/Resolved]
  - Pneumonia [Recovered/Resolved]
  - Acne [Recovered/Resolved]
  - Malaise [Recovered/Resolved]
  - Adverse event [Unknown]
  - Heart rate increased [Recovered/Resolved]
  - Alopecia [Recovered/Resolved]
  - Heart rate increased [Not Recovered/Not Resolved]
  - Organising pneumonia [Unknown]

NARRATIVE: CASE EVENT DATE: 2012
